FAERS Safety Report 21874421 (Version 11)
Quarter: 2025Q1

REPORT INFORMATION
  Report Type: Spontaneous
  Country: US (occurrence: US)
  Receive Date: 20230117
  Receipt Date: 20250227
  Transmission Date: 20250408
  Serious: Yes (Other)
  Sender: PFIZER
  Company Number: US-PFIZER INC-PV202300005949

PATIENT
  Age: 76 Year
  Sex: Female

DRUGS (2)
  1. IBRANCE [Suspect]
     Active Substance: PALBOCICLIB
     Indication: Breast cancer female
     Dosage: 125 MG DAILY INDICATE NUMBER OF REFILLS: 11
     Route: 048
  2. IBRANCE [Suspect]
     Active Substance: PALBOCICLIB

REACTIONS (15)
  - Gangrene [Recovering/Resolving]
  - Limb injury [Recovering/Resolving]
  - Contusion [Recovering/Resolving]
  - Malaise [Unknown]
  - Insomnia [Unknown]
  - Decreased appetite [Unknown]
  - Hypertension [Unknown]
  - Full blood count abnormal [Unknown]
  - Diarrhoea [Unknown]
  - Incontinence [Unknown]
  - Illness [Unknown]
  - Blood test abnormal [Unknown]
  - Feeding disorder [Recovered/Resolved]
  - Weight decreased [Unknown]
  - Vomiting [Recovered/Resolved]

NARRATIVE: CASE EVENT DATE: 20230101
